FAERS Safety Report 20061071 (Version 1)
Quarter: 2021Q4

REPORT INFORMATION
  Report Type: Spontaneous
  Country: US (occurrence: US)
  Receive Date: 20211112
  Receipt Date: 20211112
  Transmission Date: 20220303
  Serious: No
  Sender: FDA-Public Use
  Company Number: US-ORGANON-O2110USA001279

PATIENT
  Age: 85 Year
  Sex: Male

DRUGS (2)
  1. COZAAR [Suspect]
     Active Substance: LOSARTAN POTASSIUM
     Indication: Haematuria
     Dosage: UNK
     Route: 048
     Dates: start: 2020
  2. COZAAR [Suspect]
     Active Substance: LOSARTAN POTASSIUM
     Indication: Proteinuria

REACTIONS (1)
  - Drug ineffective [Recovering/Resolving]
